FAERS Safety Report 7551576-7 (Version None)
Quarter: 2011Q2

REPORT INFORMATION
  Report Type: 
  Country: None (occurrence: None)
  Receive Date: 20110616
  Receipt Date: 20110121
  Transmission Date: 20111010
  Serious: Yes (Hospitalization)
  Sender: FDA-Public Use
  Company Number: US-BAYER-200943863NA

PATIENT
  Age: 27 Year
  Sex: Female
  Weight: 54.545 kg

DRUGS (12)
  1. DROSPIRENONE AND ETHINYL ESTRADIOL [Concomitant]
     Indication: PROPHYLAXIS
     Route: 048
     Dates: start: 20080718, end: 20090101
  2. NEXIUM [Concomitant]
  3. CLARITIN [Concomitant]
     Indication: ASTHMA
     Dosage: ALWAYS, ON + OFF FOR 20 YEARS
  4. LEXAPRO [Concomitant]
     Indication: DEPRESSION
     Dosage: FOR 10 YEARS
  5. CEPHALEXIN [Concomitant]
  6. SINGULAIR [Concomitant]
     Indication: ASTHMA
     Dosage: ALWAYS, ON + OFF FOR 20 YEARS
  7. FLUCONAZOLE [Concomitant]
  8. ADVAIR DISKUS 100/50 [Concomitant]
     Indication: ASTHMA
     Dosage: ALWAYS, ON + OFF FOR 20 YEARS
  9. NSAID'S [Concomitant]
  10. CIMETIDINE [Concomitant]
  11. YASMIN [Suspect]
     Indication: PROPHYLAXIS
     Route: 048
     Dates: start: 20031201
  12. ALBUTEROL INHALER [Concomitant]
     Route: 055

REACTIONS (3)
  - INFECTION [None]
  - CHOLECYSTITIS [None]
  - ABDOMINAL PAIN [None]
